FAERS Safety Report 9684510 (Version 2)
Quarter: 2013Q4

REPORT INFORMATION
  Report Type: Spontaneous
  Country: TR (occurrence: TR)
  Receive Date: 20131112
  Receipt Date: 20131119
  Transmission Date: 20140711
  Serious: No
  Sender: FDA-Public Use
  Company Number: TR-PFIZER INC-2013320556

PATIENT
  Age: 76 Year
  Sex: Male
  Weight: 85 kg

DRUGS (8)
  1. NEURONTIN [Suspect]
     Indication: DIABETIC NEUROPATHY
     Dosage: UNK
     Route: 048
     Dates: start: 20120111
  2. NEURONTIN [Suspect]
     Dosage: 600 MG, 4X/DAY
     Route: 048
  3. NEURONTIN [Suspect]
     Dosage: 3000 MG, DAILY (900+600+900+600 MG)
     Route: 048
  4. NEURONTIN [Suspect]
     Dosage: 3000 MG, DAILY (900+600+600+900 MG)
     Route: 048
  5. NEURONTIN [Suspect]
     Dosage: 600 MG, 3X/DAY
     Route: 048
  6. ATEROZ [Suspect]
     Indication: HYPERCHOLESTEROLAEMIA
     Dosage: 40 MG, UNK
  7. ATEROZ [Suspect]
     Dosage: 20 MG, UNK
  8. ATEROZ [Suspect]
     Dosage: 20 MG, ALTERNATE DAY

REACTIONS (14)
  - Hypoaesthesia [Unknown]
  - Fatigue [Unknown]
  - Movement disorder [Unknown]
  - Local swelling [Unknown]
  - Muscle spasms [Unknown]
  - Pain [Unknown]
  - Insomnia [Unknown]
  - Diplopia [Unknown]
  - Speech disorder [Unknown]
  - Skin discolouration [Unknown]
  - Blood creatine phosphokinase increased [Unknown]
  - Arthralgia [Unknown]
  - Hypoglycaemia [Unknown]
  - Oedema peripheral [Unknown]
